FAERS Safety Report 7717667-2 (Version None)
Quarter: 2011Q3

REPORT INFORMATION
  Report Type: 
  Country: None (occurrence: None)
  Receive Date: 20110830
  Receipt Date: 20110830
  Transmission Date: 20111222
  Serious: Yes (Other)
  Sender: FDA-Public Use
  Company Number: None

PATIENT
  Age: 66 Year
  Sex: Male
  Weight: 87 kg

DRUGS (8)
  1. DABIGATRAN [Suspect]
     Indication: ATRIAL FIBRILLATION
     Dosage: 150MG
     Route: 048
     Dates: start: 20110625, end: 20110701
  2. LIPITOR [Concomitant]
  3. OSTEO BI-FLEX [Concomitant]
  4. CARVEDILOL [Concomitant]
  5. ALBUTEROL SULFATE AUTOHALER [Concomitant]
     Route: 048
  6. MULTI-VITAMIN [Concomitant]
     Route: 048
  7. DIGOXIN [Concomitant]
  8. ZINC [Concomitant]

REACTIONS (6)
  - PURPURA [None]
  - RASH ERYTHEMATOUS [None]
  - RASH PRURITIC [None]
  - PAIN OF SKIN [None]
  - PETECHIAE [None]
  - INCREASED TENDENCY TO BRUISE [None]
